FAERS Safety Report 4763240-8 (Version None)
Quarter: 2005Q3

REPORT INFORMATION
  Report Type: 
  Country: None (occurrence: None)
  Receive Date: 20050902
  Receipt Date: 20050824
  Transmission Date: 20060218
  Serious: Yes (Other)
  Sender: FDA-Public Use
  Company Number: US014711

PATIENT
  Age: 56 Year
  Sex: Male
  Weight: 83.4 kg

DRUGS (16)
  1. FENTANYL CITRATE [Suspect]
     Indication: CANCER PAIN
     Dosage: 1600 UG PRN BUCCAL
     Route: 002
     Dates: start: 20050212, end: 20050215
  2. GABAPENTIN [Suspect]
     Indication: ANALGESIC EFFECT
     Dosage: 600 MG DAILY
     Dates: start: 20040101, end: 20050215
  3. OXYCONTIN [Suspect]
     Indication: ANALGESIC EFFECT
     Dosage: 80 MG DAILY
     Dates: start: 20040101
  4. OXYNORM [Suspect]
     Indication: ANALGESIC EFFECT
     Dosage: 30 MG DAILY
     Dates: start: 20040101
  5. CO-PROXAMOL [Suspect]
     Indication: ANALGESIC EFFECT
     Dosage: 8 TAB/CAP DAILY
     Dates: start: 20041019
  6. CAPECITABINE [Suspect]
     Indication: METASTATIC NEOPLASM
     Dosage: 2.5 GR DAILY
     Dates: start: 20040101
  7. CAPECITABINE [Suspect]
     Indication: NEOPLASM PROPHYLAXIS
     Dosage: 2.5 GR DAILY
     Dates: start: 20040101
  8. PARACETAMOL [Concomitant]
  9. DEXAMETHAZONE-PIX [Concomitant]
  10. LANSOPRAZOLE [Concomitant]
  11. LAXOBERAL ^BOEHRINGER INGELHEIM^ [Concomitant]
  12. MOVICOL [Concomitant]
  13. SENNA [Concomitant]
  14. SPIRONOLACTONE [Concomitant]
  15. OMEPRAZOLE [Concomitant]
  16. COPROXAMOL [Concomitant]

REACTIONS (5)
  - COMMUNICATION DISORDER [None]
  - DISORIENTATION [None]
  - DRUG INTERACTION [None]
  - DRUG TOXICITY [None]
  - OVERDOSE [None]
